FAERS Safety Report 4444826-7 (Version None)
Quarter: 2004Q3

REPORT INFORMATION
  Report Type: 
  Country: None (occurrence: None)
  Receive Date: 20040903
  Receipt Date: 20040823
  Transmission Date: 20050211
  Serious: Yes (Hospitalization, Disabling)
  Sender: FDA-Public Use
  Company Number: 2004AP03904

PATIENT
  Age: 78 Year
  Sex: Male
  Weight: 46 kg

DRUGS (6)
  1. OMEPRAL [Suspect]
     Indication: REFLUX OESOPHAGITIS
     Dosage: 20 UG DAILY PO
     Route: 048
     Dates: start: 20040628, end: 20040705
  2. FERROMIA [Suspect]
     Indication: IRON DEFICIENCY ANAEMIA
     Dosage: 100 MG DAILY PO
     Route: 048
     Dates: start: 20031201, end: 20040720
  3. HICEE [Suspect]
     Indication: IRON DEFICIENCY ANAEMIA
     Dosage: 450 MG DAILY PO
     Route: 048
     Dates: start: 20031201, end: 20040720
  4. MICARDIS [Suspect]
     Indication: HYPERTENSION
     Dosage: 40 MG DAILY PO
     Route: 048
     Dates: start: 20040626, end: 20040705
  5. ALLOID [Suspect]
     Indication: GASTRITIS
     Dosage: 60 ML DAILY PO
     Route: 048
     Dates: start: 20040628, end: 20040705
  6. EPOGIN [Concomitant]

REACTIONS (9)
  - ANAEMIA [None]
  - CEREBRAL HAEMORRHAGE [None]
  - CONVULSION [None]
  - DYSPEPSIA [None]
  - GASTROOESOPHAGEAL REFLUX DISEASE [None]
  - HAEMODIALYSIS [None]
  - MEGAKARYOCYTES INCREASED [None]
  - STOMACH DISCOMFORT [None]
  - THROMBOCYTOPENIA [None]
